FAERS Safety Report 8493745-8 (Version None)
Quarter: 2012Q3

REPORT INFORMATION
  Report Type: 
  Country: None (occurrence: None)
  Receive Date: 20120706
  Receipt Date: 20120621
  Transmission Date: 20120928
  Serious: No
  Sender: FDA-Public Use
  Company Number: US-ASTRAZENECA-2012SE38771

PATIENT
  Age: 73 Year
  Sex: Male

DRUGS (26)
  1. CRESTOR [Suspect]
     Indication: BLOOD CHOLESTEROL
     Route: 048
     Dates: start: 20110525
  2. ARICEPT [Concomitant]
     Indication: MEMORY IMPAIRMENT
     Dates: start: 20091101
  3. METOPROLOL TARTRATE [Concomitant]
  4. FERROUS SULFATE TAB [Concomitant]
  5. LANTUS [Concomitant]
     Dates: start: 20100118
  6. LANTUS [Concomitant]
     Dates: start: 20120524
  7. ISOSORBIDE [Concomitant]
     Indication: CARDIAC DISORDER
     Dosage: 60 MG/1 DF IN THE MORNING AND 1/2 IN THE EVENING
     Dates: start: 20120601
  8. PANTOPRAZOLE [Concomitant]
     Indication: GASTROOESOPHAGEAL REFLUX DISEASE
     Dates: start: 20110209
  9. METFORMIN HCL [Concomitant]
     Dates: start: 20060201
  10. ZESTRIL [Suspect]
     Route: 048
  11. ISOSORBIDE [Concomitant]
     Dosage: 60 MG/1 DF IN THE MORNING AND 1/2 IN THE EVENING
     Dates: start: 20120605
  12. CRESTOR [Suspect]
     Route: 048
     Dates: start: 20120607
  13. ASPIRIN [Concomitant]
  14. GLIMEPIRIDE [Concomitant]
     Dosage: 4 MG/ 1 DF IN AM AND 1 DF PM
  15. LANTUS [Concomitant]
     Dates: start: 20090901
  16. AMMONIUM LACTATE [Concomitant]
     Indication: DRY SKIN
     Dosage: AS NEEDED
     Dates: start: 20110321, end: 20110415
  17. LANTUS [Concomitant]
     Dates: start: 20101108
  18. ARICEPT [Concomitant]
     Dosage: SAMPLES OF 23 MG
     Dates: start: 20101020
  19. ARICEPT [Concomitant]
     Dates: start: 20101108
  20. FIBERCON [Concomitant]
     Dates: start: 20100901
  21. NAMENDA [Concomitant]
  22. MULTIPLE VITAMIN [Concomitant]
  23. LANTUS [Concomitant]
     Dates: start: 20090804
  24. METFORMIN HCL [Concomitant]
     Dates: start: 20101108, end: 20110321
  25. LOSARTAN POTASSIUM [Concomitant]
     Indication: BLOOD PRESSURE ABNORMAL
     Dates: start: 20120327
  26. PLAVIX [Concomitant]
     Indication: CARDIAC DISORDER
     Dates: start: 20120508

REACTIONS (1)
  - DRUG HYPERSENSITIVITY [None]
